FAERS Safety Report 25009456 (Version 1)
Quarter: 2025Q1

REPORT INFORMATION
  Report Type: Spontaneous
  Country: US (occurrence: None)
  Receive Date: 20250221
  Receipt Date: 20250221
  Transmission Date: 20250409
  Serious: Yes (Other)
  Sender: FDA-CTU
  Company Number: None

PATIENT
  Age: 4 Month
  Sex: Male
  Weight: 6.3 kg

DRUGS (1)
  1. FLUCONAZOLE [Suspect]
     Active Substance: FLUCONAZOLE
     Indication: Fungal infection
     Route: 048
     Dates: start: 20250220, end: 20250220

REACTIONS (2)
  - Exposure via breast milk [None]
  - Urticaria [None]

NARRATIVE: CASE EVENT DATE: 20250221
